FAERS Safety Report 8533385-5 (Version None)
Quarter: 2012Q3

REPORT INFORMATION
  Report Type: 
  Country: None (occurrence: None)
  Receive Date: 20120724
  Receipt Date: 20120719
  Transmission Date: 20120928
  Serious: Yes (Hospitalization, Other)
  Sender: FDA-Public Use
  Company Number: PHHY2012CA062869

PATIENT
  Age: 5 Year

DRUGS (1)
  1. CLOZAPINE [Suspect]
     Indication: DISEASE COMPLICATION
     Dosage: 700 MG, QD

REACTIONS (2)
  - APPENDICITIS [None]
  - GASTROINTESTINAL MOTILITY DISORDER [None]
